FAERS Safety Report 10713029 (Version 1)
Quarter: 2015Q1

REPORT INFORMATION
  Report Type: Spontaneous
  Country: US (occurrence: None)
  Receive Date: 20150114
  Receipt Date: 20150114
  Transmission Date: 20150721
  Serious: Yes (Other)
  Sender: FDA-Public Use
  Company Number: None

PATIENT
  Age: 24 Year
  Sex: Male

DRUGS (1)
  1. CIMZIA [Suspect]
     Active Substance: CERTOLIZUMAB PEGOL
     Indication: CROHN^S DISEASE
     Route: 042
     Dates: start: 20140807, end: 20150113

REACTIONS (3)
  - Rash generalised [None]
  - Dermatitis contact [None]
  - Pruritus [None]

NARRATIVE: CASE EVENT DATE: 20140901
